FAERS Safety Report 4902531-4 (Version None)
Quarter: 2006Q1

REPORT INFORMATION
  Report Type: 
  Country: None (occurrence: None)
  Receive Date: 20060202
  Receipt Date: 20060123
  Transmission Date: 20060701
  Serious: Yes (Disabling)
  Sender: FDA-Public Use
  Company Number: 2006-137769-NL

PATIENT
  Age: 43 Year
  Sex: Female

DRUGS (5)
  1. MIRTAZAPINE [Suspect]
     Indication: DEPRESSION
     Route: 048
     Dates: start: 20051117, end: 20051123
  2. MIRTAZAPINE [Suspect]
     Indication: PANIC ATTACK
     Route: 048
     Dates: start: 20051117, end: 20051123
  3. DIAZEPAM [Concomitant]
  4. PAROXETINE HCL [Concomitant]
  5. LOFEPRAMINE [Concomitant]
     Indication: PANIC DISORDER
     Route: 048

REACTIONS (2)
  - BLOOD PROLACTIN INCREASED [None]
  - BREAST TENDERNESS [None]
